FAERS Safety Report 6158424-0 (Version None)
Quarter: 2009Q2

REPORT INFORMATION
  Report Type: 
  Country: None (occurrence: None)
  Receive Date: 20090417
  Receipt Date: 20090407
  Transmission Date: 20091009
  Serious: Yes (Other)
  Sender: FDA-Public Use
  Company Number: PR-BAYER-200917879NA

PATIENT
  Age: 55 Year
  Sex: Male

DRUGS (4)
  1. LEVITRA [Suspect]
     Indication: DRUG USE FOR UNKNOWN INDICATION
     Dosage: UNIT DOSE: 10 MG
  2. LEVITRA [Suspect]
     Dosage: UNIT DOSE: 20 MG
  3. LOVAZA [Concomitant]
  4. ATENOLOL [Concomitant]

REACTIONS (2)
  - DEAFNESS [None]
  - VERTIGO [None]
